FAERS Safety Report 25373245 (Version 1)
Quarter: 2025Q2

REPORT INFORMATION
  Report Type: Spontaneous
  Country: US (occurrence: US)
  Receive Date: 20250529
  Receipt Date: 20250529
  Transmission Date: 20250717
  Serious: No
  Sender: Kenvue
  Company Number: US-KENVUE-20250506353

PATIENT
  Sex: Female

DRUGS (1)
  1. WOMENS ROGAINE [Suspect]
     Active Substance: MINOXIDIL
     Indication: Alopecia
     Dosage: 3 MILLIGRAM, TWICE DAILY
     Route: 061
     Dates: start: 2024, end: 2025

REACTIONS (2)
  - Hair growth abnormal [Recovering/Resolving]
  - Overdose [Unknown]

NARRATIVE: CASE EVENT DATE: 20240101
